FAERS Safety Report 15295170 (Version 2)
Quarter: 2021Q2

REPORT INFORMATION
  Report Type: Spontaneous
  Country: US (occurrence: US)
  Receive Date: 20180820
  Receipt Date: 20210607
  Transmission Date: 20210716
  Serious: No
  Sender: FDA-Public Use
  Company Number: US-PFIZER INC-2018332875

PATIENT
  Age: 61 Year
  Sex: Male

DRUGS (3)
  1. BOSULIF [Suspect]
     Active Substance: BOSUTINIB MONOHYDRATE
     Dosage: 200 MG
  2. BOSULIF [Suspect]
     Active Substance: BOSUTINIB MONOHYDRATE
     Dosage: 100 MG
     Dates: start: 20180421
  3. BOSULIF [Suspect]
     Active Substance: BOSUTINIB MONOHYDRATE
     Dosage: 100 MG
     Route: 048
     Dates: start: 20180801, end: 20180814

REACTIONS (4)
  - Paraesthesia [Unknown]
  - Peripheral coldness [Unknown]
  - Constipation [Unknown]
  - Fatigue [Unknown]

NARRATIVE: CASE EVENT DATE: 20180814
